FAERS Safety Report 8905789 (Version 1)
Quarter: 2012Q4

REPORT INFORMATION
  Report Type: 
  Country: GB (occurrence: GB)
  Receive Date: 20121111
  Receipt Date: 20121111
  Transmission Date: 20130627
  Serious: Yes (Other)
  Sender: FDA-Public Use
  Company Number: PHFR2012GB005862

PATIENT

DRUGS (1)
  1. ZOMETA [Suspect]
     Indication: OSTEONECROSIS OF JAW

REACTIONS (1)
  - Osteonecrosis of jaw [Unknown]
